FAERS Safety Report 5149898-2 (Version None)
Quarter: 2006Q4

REPORT INFORMATION
  Report Type: 
  Country: None (occurrence: None)
  Receive Date: 20061113
  Receipt Date: 20061030
  Transmission Date: 20070319
  Serious: Yes (Hospitalization, Other)
  Sender: FDA-Public Use
  Company Number: US-ELI_LILLY_AND_COMPANY-US200610005479

PATIENT
  Age: 71 Year
  Sex: Female

DRUGS (2)
  1. EVISTA [Suspect]
     Indication: OSTEOPOROSIS
     Route: 048
  2. SYNTHROID [Concomitant]
     Indication: HYPOTHYROIDISM

REACTIONS (2)
  - FALL [None]
  - SPINAL FRACTURE [None]
